FAERS Safety Report 13802307 (Version 1)
Quarter: 2017Q3

REPORT INFORMATION
  Report Type: Spontaneous
  Country: RU (occurrence: RU)
  Receive Date: 20170727
  Receipt Date: 20170727
  Transmission Date: 20171127
  Serious: Yes (Other)
  Sender: FDA-Public Use
  Company Number: RU-TERSERA THERAPEUTICS, LLC-2023861

PATIENT
  Sex: Male

DRUGS (1)
  1. ZOLADEX [Suspect]
     Active Substance: GOSERELIN ACETATE
     Indication: PRODUCT USED FOR UNKNOWN INDICATION
     Route: 058
     Dates: start: 20150101

REACTIONS (2)
  - Drug ineffective [Unknown]
  - Malignant neoplasm progression [Unknown]
